FAERS Safety Report 9200437 (Version 1)
Quarter: 2013Q1

REPORT INFORMATION
  Report Type: Report from Study
  Country: US (occurrence: US)
  Receive Date: 20130329
  Receipt Date: 20130329
  Transmission Date: 20140127
  Serious: Yes (Hospitalization, Other)
  Sender: FDA-Public Use
  Company Number: US-ABBOTT-13P-163-1067231-00

PATIENT
  Age: 58 Year
  Sex: Male

DRUGS (10)
  1. HUMIRA [Suspect]
     Indication: RHEUMATOID ARTHRITIS
     Dates: start: 201101
  2. HUMIRA [Suspect]
     Dates: start: 201301
  3. LANSOPRAZOLE [Concomitant]
     Indication: PRODUCT USED FOR UNKNOWN INDICATION
     Dosage: 30 MG DAILY
  4. DICLOFENAC [Concomitant]
     Indication: PRODUCT USED FOR UNKNOWN INDICATION
     Dosage: 2 TABLETS DAILY
  5. OYSTER CAL WITH VITAMIN D [Concomitant]
     Indication: PRODUCT USED FOR UNKNOWN INDICATION
  6. FOLIC ACID [Concomitant]
     Indication: PRODUCT USED FOR UNKNOWN INDICATION
     Dosage: 1 MG DAILY
  7. TRAMADOL [Concomitant]
     Indication: PRODUCT USED FOR UNKNOWN INDICATION
  8. VICODIN [Concomitant]
     Indication: PRODUCT USED FOR UNKNOWN INDICATION
  9. PREDNISONE [Concomitant]
     Dates: end: 201301
  10. PREDNISONE [Concomitant]
     Dates: start: 201301

REACTIONS (13)
  - Hiatus hernia [Not Recovered/Not Resolved]
  - Blood cholesterol increased [Unknown]
  - Hypertension [Unknown]
  - Weight increased [Unknown]
  - Laceration [Unknown]
  - Localised infection [Recovered/Resolved]
  - Umbilical hernia [Not Recovered/Not Resolved]
  - Pain [Unknown]
  - Inflammation [Unknown]
  - Local swelling [Unknown]
  - Insomnia [Unknown]
  - Psoriasis [Unknown]
  - Pruritus generalised [Unknown]
